FAERS Safety Report 8737703 (Version 2)
Quarter: 2013Q4

REPORT INFORMATION
  Report Type: Report from Study
  Country: JP (occurrence: JP)
  Receive Date: 20120822
  Receipt Date: 20131106
  Transmission Date: 20140711
  Serious: Yes (Other)
  Sender: FDA-Public Use
  Company Number: JP-009507513-1208JPN006866

PATIENT
  Age: 60 Year
  Sex: Male
  Weight: 57 kg

DRUGS (7)
  1. PEGINTRON [Suspect]
     Indication: HEPATITIS C
     Dosage: 1.5MCG/KG/WEEK
     Route: 058
     Dates: start: 20120413, end: 20120421
  2. REBETOL [Suspect]
     Indication: HEPATITIS C
     Dosage: 400 MG, ONCE
     Route: 048
     Dates: start: 20120413, end: 20120423
  3. TELAVIC [Suspect]
     Indication: HEPATITIS C
     Dosage: 1500 MG, ONCE
     Route: 048
     Dates: start: 20120413, end: 20120423
  4. URSO [Concomitant]
     Indication: HEPATITIS C
     Dosage: 600 MG, ONCE
     Route: 048
  5. GLYCYRON [Concomitant]
     Indication: HEPATITIS C
     Dosage: 75 MG, ONCE
     Route: 048
  6. BLOPRESS [Concomitant]
     Indication: HYPERTENSION
     Dosage: 8 MG, ONCE
     Route: 048
     Dates: end: 20120423
  7. PARIET [Concomitant]
     Indication: GASTROOESOPHAGEAL REFLUX DISEASE
     Dosage: 10 MG, ONCE
     Route: 048
     Dates: start: 20120412, end: 20120423

REACTIONS (2)
  - Drug eruption [Recovering/Resolving]
  - Diverticular perforation [Recovered/Resolved with Sequelae]
